FAERS Safety Report 6114250-X (Version None)
Quarter: 2009Q1

REPORT INFORMATION
  Report Type: 
  Country: None (occurrence: None)
  Receive Date: 20090312
  Receipt Date: 20080919
  Transmission Date: 20090719
  Serious: No
  Sender: FDA-Public Use
  Company Number: US-ABBOTT-08P-163-0477451-00

PATIENT
  Sex: Female
  Weight: 86.26 kg

DRUGS (7)
  1. DEPAKOTE [Suspect]
     Indication: BIPOLAR DISORDER
     Route: 048
     Dates: start: 19940101, end: 20071201
  2. DEPAKOTE [Suspect]
     Dates: start: 20080601
  3. LAMOTRIGINE [Concomitant]
     Indication: BIPOLAR DISORDER
     Route: 048
     Dates: start: 20071201
  4. QUETIAPINE FUMARATE [Concomitant]
     Indication: BIPOLAR DISORDER
     Route: 048
     Dates: start: 19990101
  5. CIPREXA [Concomitant]
     Indication: BIPOLAR DISORDER
     Route: 048
     Dates: start: 20080801
  6. METOPROLOL TARTRATE [Concomitant]
     Indication: HYPERTENSION
     Route: 048
     Dates: start: 19920101
  7. LEVOTHYROXINE SODIUM [Concomitant]
     Indication: HYPOTHYROIDISM
     Route: 048
     Dates: start: 19920101

REACTIONS (2)
  - ALOPECIA [None]
  - BENIGN HEPATIC NEOPLASM [None]
